FAERS Safety Report 18566413 (Version 3)
Quarter: 2020Q4

REPORT INFORMATION
  Report Type: Report from Study
  Country: MX (occurrence: MX)
  Receive Date: 20201201
  Receipt Date: 20201211
  Transmission Date: 20210114
  Serious: No
  Sender: FDA-Public Use
  Company Number: NVSC2020MX316941

PATIENT
  Sex: Male
  Weight: 61 kg

DRUGS (4)
  1. HYDREA [Concomitant]
     Active Substance: HYDROXYUREA
     Indication: CHRONIC MYELOID LEUKAEMIA
     Dosage: 1 DF, IN MORNING AND AT NIGHT
     Route: 048
     Dates: start: 2017, end: 2019
  2. IMATINIB. [Suspect]
     Active Substance: IMATINIB MESYLATE
     Indication: CHRONIC MYELOID LEUKAEMIA
     Dosage: 1 DF, IN MORNING AND AT NIGHT
     Route: 048
     Dates: start: 2019
  3. IPRATROPIUM [Concomitant]
     Active Substance: IPRATROPIUM
     Indication: CHRONIC OBSTRUCTIVE PULMONARY DISEASE
     Dosage: 1 DF, QD (STARTED 5 YEARS AGO)
     Route: 055
  4. SENNOSIDES A+B [Concomitant]
     Active Substance: SENNOSIDES A AND B
     Indication: ABDOMINAL HERNIA
     Dosage: 2 DF, AT NIGHT (STARTED 5 YEARS AGO)
     Route: 048

REACTIONS (4)
  - Nail disorder [Recovered/Resolved]
  - Skin graft detachment [Recovered/Resolved]
  - Off label use [Unknown]
  - Rash [Recovered/Resolved]
